FAERS Safety Report 18122836 (Version 1)
Quarter: 2020Q3

REPORT INFORMATION
  Report Type: Report from Study
  Country: JP (occurrence: JP)
  Receive Date: 20200807
  Receipt Date: 20200807
  Transmission Date: 20201103
  Serious: Yes (Death, Hospitalization, Other)
  Sender: FDA-Public Use
  Company Number: JP-ASTELLAS-2019JP018774

PATIENT
  Age: 76 Year
  Sex: Female
  Weight: 47 kg

DRUGS (11)
  1. ASP2215 [Suspect]
     Active Substance: GILTERITINIB
     Route: 048
  2. MEROPENEM. [Concomitant]
     Active Substance: MEROPENEM
     Indication: PYREXIA
     Dosage: 3 G/DAY, UNKNOWN FREQ.
     Route: 041
     Dates: start: 20190906, end: 20191015
  3. ASP2215 [Suspect]
     Active Substance: GILTERITINIB
     Indication: ACUTE MYELOID LEUKAEMIA RECURRENT
     Route: 048
     Dates: start: 20190823
  4. FUNGUARD [Concomitant]
     Active Substance: MICAFUNGIN SODIUM
     Indication: PYREXIA
     Dosage: 150 MG/DAY, UNKNOWN FREQ.
     Route: 065
     Dates: start: 20190907, end: 20191014
  5. FIRSTCIN [Concomitant]
     Active Substance: CEFOZOPRAN HYDROCHLORIDE
     Indication: PROPHYLAXIS
     Dosage: 1 G/DAY, UNKNOWN FREQ.
     Route: 065
  6. FEBURIC [Concomitant]
     Active Substance: FEBUXOSTAT
     Indication: PROPHYLAXIS
     Dosage: 20 MG/DAY, UNKNOWN FREQ.
     Route: 048
  7. TAKECAB [Concomitant]
     Active Substance: VONOPRAZAN FUMARATE
     Indication: PROPHYLAXIS
     Dosage: 20 MG/DAY, UNKNOWN FREQ.
     Route: 048
  8. INSULIN GLARGINE BS [Concomitant]
     Active Substance: INSULIN GLARGINE
     Indication: TYPE 2 DIABETES MELLITUS
     Dosage: 8 IU/DAY, UNKNOWN FREQ.
     Route: 065
     Dates: start: 20190825, end: 20190926
  9. ASP2215 [Suspect]
     Active Substance: GILTERITINIB
     Route: 048
  10. MAGMITT [Concomitant]
     Active Substance: MAGNESIUM OXIDE
     Indication: PROPHYLAXIS
     Dosage: 1500 MG/DAY, UNKNOWN FREQ.
     Route: 048
  11. ASP2215 [Suspect]
     Active Substance: GILTERITINIB
     Route: 048
     Dates: start: 201909, end: 20190921

REACTIONS (4)
  - Electrocardiogram QT prolonged [Recovering/Resolving]
  - Cerebral haemorrhage [Fatal]
  - Liver disorder [Recovered/Resolved]
  - Drug eruption [Recovered/Resolved]

NARRATIVE: CASE EVENT DATE: 20190828
